FAERS Safety Report 7686966-5 (Version None)
Quarter: 2011Q3

REPORT INFORMATION
  Report Type: 
  Country: None (occurrence: None)
  Receive Date: 20110816
  Receipt Date: 20110804
  Transmission Date: 20111222
  Serious: Yes (Other)
  Sender: FDA-Public Use
  Company Number: US-CELGENEUS-163-21880-11053601

PATIENT
  Sex: Male

DRUGS (11)
  1. DEXAMETHASONE [Concomitant]
     Route: 065
  2. POTASSIUM [Concomitant]
     Route: 065
  3. GEMFIBROZIL [Concomitant]
     Route: 065
  4. LIPITOR [Concomitant]
     Route: 065
  5. REVLIMID [Suspect]
     Dosage: 5 MILLIGRAM
     Route: 048
     Dates: start: 20100112
  6. TAMSULOSIN HCL [Concomitant]
     Route: 065
  7. FUROSEMIDE [Concomitant]
     Route: 065
  8. OMEPRAZOLE [Concomitant]
     Route: 065
  9. REVLIMID [Suspect]
     Dosage: 5 MILLIGRAM
     Route: 048
     Dates: start: 20080813, end: 20081211
  10. REVLIMID [Suspect]
     Dosage: 5 MILLIGRAM
     Route: 048
     Dates: start: 20091021, end: 20091101
  11. COUMADIN [Concomitant]
     Route: 065

REACTIONS (1)
  - EYE DISORDER [None]
